FAERS Safety Report 10525046 (Version 2)
Quarter: 2014Q4

REPORT INFORMATION
  Report Type: Spontaneous
  Country: US (occurrence: None)
  Receive Date: 20141015
  Receipt Date: 20141031
  Transmission Date: 20150528
  Serious: Yes (Other)
  Sender: FDA-Public Use
  Company Number: 2013-US-000202

PATIENT
  Age: 33 Year
  Sex: Female
  Weight: 88.4 kg

DRUGS (3)
  1. XYREM [Suspect]
     Active Substance: SODIUM OXYBATE
     Indication: INSOMNIA
     Route: 048
     Dates: start: 20130417, end: 2013
  2. PRAVACHOL (PRAVASTATIN SODIUM) [Concomitant]
  3. METHADONE HYDROCHLORIDE. [Concomitant]
     Active Substance: METHADONE HYDROCHLORIDE

REACTIONS (7)
  - Dysphemia [None]
  - Tremor [None]
  - Pancreatectomy [None]
  - Seizure [None]
  - Off label use [None]
  - Muscle twitching [None]
  - Speech disorder [None]

NARRATIVE: CASE EVENT DATE: 201308
